FAERS Safety Report 6032798-3 (Version None)
Quarter: 2009Q1

REPORT INFORMATION
  Report Type: 
  Country: None (occurrence: None)
  Receive Date: 20090109
  Receipt Date: 20090108
  Transmission Date: 20090719
  Serious: Yes (Other)
  Sender: FDA-Public Use
  Company Number: US-BAYER-200837636NA

PATIENT
  Age: 21 Year
  Sex: Female
  Weight: 77 kg

DRUGS (1)
  1. MIRENA [Suspect]
     Indication: DRUG USE FOR UNKNOWN INDICATION
     Route: 015
     Dates: start: 20080917, end: 20080917

REACTIONS (4)
  - CONVULSION [None]
  - DIZZINESS [None]
  - SYNCOPE [None]
  - VOMITING [None]
